FAERS Safety Report 15188361 (Version 3)
Quarter: 2019Q1

REPORT INFORMATION
  Report Type: Spontaneous
  Country: GB (occurrence: FR)
  Receive Date: 20180724
  Receipt Date: 20190315
  Transmission Date: 20190417
  Serious: Yes (Hospitalization, Congenital Anomaly, Other)
  Sender: FDA-Public Use
  Company Number: FR-FRESENIUS KABI-FK201807942

PATIENT
  Age: 1 Month
  Sex: Female
  Weight: 3 kg

DRUGS (10)
  1. SMOFLIPID [Suspect]
     Active Substance: FISH OIL\MEDIUM-CHAIN TRIGLYCERIDES\OLIVE OIL\SOYBEAN OIL
     Indication: PARENTERAL NUTRITION
     Dosage: 65 ML PER BAG
     Route: 065
     Dates: start: 20180624, end: 20180625
  2. GLUCOSE (MANUFACTURER UNKNOWN) [Suspect]
     Active Substance: DEXTROSE
     Indication: PARENTERAL NUTRITION
     Dosage: 146 ML PER BAG
     Route: 065
     Dates: start: 20180624, end: 20180625
  3. CYSTEINE/GLYCINE/ALANINE/SERINE/ASPARTIC ACID/LYSINE/TYROSINE/LEUCINE/METHIONINE/PHENYLALANINE/HISTI [Suspect]
     Active Substance: AMINO ACIDS
     Indication: PARENTERAL NUTRITION
     Dosage: 130 ML PER BAG
     Route: 065
     Dates: start: 20180624, end: 20180625
  4. ASCORBIC ACID/PYRIDOXINE HYDROCHLORIDE/BIOTIN/TOCOPHEROL/FOLIC ACID/COLECALCIFEROL/CYANOCOBALAMIN/RE [Suspect]
     Active Substance: VITAMINS
     Indication: PARENTERAL NUTRITION
     Dosage: 2.50 ML PER BAG
     Route: 065
     Dates: start: 20180624, end: 20180625
  5. ESOMEPRAZOLE MAGNESIUM. [Concomitant]
     Active Substance: ESOMEPRAZOLE MAGNESIUM
     Indication: PRODUCT USED FOR UNKNOWN INDICATION
     Dosage: 3MG, QD
     Route: 042
     Dates: start: 20180515
  6. GLUCOSE/CALCIUM [Suspect]
     Active Substance: CALCIUM\DEXTROSE
     Indication: PARENTERAL NUTRITION
     Dosage: 18 ML PER BAG, GLUCOSE CALCIUM 500ML 10%
     Route: 065
     Dates: start: 20180624, end: 20180625
  7. MAGNESIUM CHLORIDE. [Suspect]
     Active Substance: MAGNESIUM CHLORIDE
     Indication: PARENTERAL NUTRITION
     Dosage: 1.60 ML PER BAG, MGCL2 10% 500ML
     Route: 065
     Dates: start: 20180624, end: 20180625
  8. GLUCOSE 1-PHOSPHATE DISODIUM [Suspect]
     Active Substance: .ALPHA.-GLUCOSE-1-PHOSPHATE
     Indication: PARENTERAL NUTRITION
     Dosage: 12 ML PER BAG
     Route: 065
     Dates: start: 20180624, end: 20180625
  9. SODIUM CHLORIDE (MANUFACTURER UNKNOWN) [Suspect]
     Active Substance: SODIUM CHLORIDE
     Indication: PARENTERAL NUTRITION
     Dosage: 1.70 ML PER BAG, NACL 20% 500ML
     Route: 065
     Dates: start: 20180624, end: 20180625
  10. POTASSIUM CHLORIDE (MANUFACTURER UNKNOWN) [Suspect]
     Active Substance: POTASSIUM CHLORIDE
     Indication: PARENTERAL NUTRITION
     Dosage: 7.40 ML PER BAG, KCL 10% 500ML
     Route: 065
     Dates: start: 20180624, end: 20180625

REACTIONS (2)
  - Klebsiella sepsis [Recovered/Resolved]
  - Septic shock [Recovered/Resolved]

NARRATIVE: CASE EVENT DATE: 20180625
